FAERS Safety Report 4595954-7 (Version None)
Quarter: 2005Q1

REPORT INFORMATION
  Report Type: 
  Country: None (occurrence: None)
  Receive Date: 20050224
  Receipt Date: 20050224
  Transmission Date: 20050727
  Serious: No
  Sender: FDA-Public Use
  Company Number: None

PATIENT
  Age: 46 Year
  Sex: Male

DRUGS (3)
  1. MORPHINE SULFATE [Suspect]
     Indication: PAIN
     Dosage: 189 MG DAILY DOSE
  2. GABITRIL [Suspect]
     Dosage: 24 MG DAILY
  3. NARCAN [Concomitant]

REACTIONS (3)
  - APHASIA [None]
  - HEMIPLEGIA [None]
  - NEUROLOGICAL SYMPTOM [None]
